FAERS Safety Report 6608514-0 (Version None)
Quarter: 2010Q1

REPORT INFORMATION
  Report Type: 
  Country: None (occurrence: None)
  Receive Date: 20100301
  Receipt Date: 20100104
  Transmission Date: 20100710
  Serious: Yes (Death)
  Sender: FDA-Public Use
  Company Number: US-BAYER-201016846GPV

PATIENT
  Age: 46 Year
  Sex: Male

DRUGS (6)
  1. NAPROXEN [Suspect]
     Route: 048
  2. COCAINE [Suspect]
     Route: 065
  3. METHADONE [Suspect]
     Route: 065
  4. MORPHINE [Suspect]
     Route: 065
  5. HYDROCODONE [Suspect]
     Route: 048
  6. BENZODIAZEPINE [Suspect]
     Route: 048

REACTIONS (1)
  - DRUG TOXICITY [None]
